FAERS Safety Report 9328140 (Version 1)
Quarter: 2013Q2

REPORT INFORMATION
  Report Type: Spontaneous
  Country: US (occurrence: US)
  Receive Date: 20130604
  Receipt Date: 20130604
  Transmission Date: 20140414
  Serious: Yes (Other)
  Sender: FDA-Public Use
  Company Number: US-SANOFI-AVENTIS-2012SA033534

PATIENT
  Age: 49 Year
  Sex: Male

DRUGS (2)
  1. LANTUS [Suspect]
     Indication: TYPE 2 DIABETES MELLITUS
     Dosage: DOSE:60 UNIT(S)
     Route: 058
     Dates: start: 2011
  2. NOVOLOG [Concomitant]
     Dosage: APPROXIMATELY 40 UNITS DAILY

REACTIONS (5)
  - Hypoglycaemic unconsciousness [Unknown]
  - Renal impairment [Unknown]
  - Drug hypersensitivity [Not Recovered/Not Resolved]
  - Hyperglycaemia [Unknown]
  - Glycosylated haemoglobin increased [Not Recovered/Not Resolved]
